FAERS Safety Report 10365708 (Version 1)
Quarter: 2014Q3

REPORT INFORMATION
  Report Type: Spontaneous
  Country: GB (occurrence: None)
  Receive Date: 20140804
  Receipt Date: 20140804
  Transmission Date: 20150326
  Serious: Yes (Other)
  Sender: FDA-Public Use
  Company Number: AUR-APL-2014-08023

PATIENT
  Age: 43 Year
  Sex: Female
  Weight: 76 kg

DRUGS (8)
  1. FLUOXETINE (FLUOXETINE) [Concomitant]
     Active Substance: FLUOXETINE HYDROCHLORIDE
  2. GABAPENTIN (GABAPENTIN) [Suspect]
     Active Substance: GABAPENTIN
     Indication: NECK PAIN
     Dosage: UNK
     Dates: start: 20140704
  3. NITROFURANTOIN (NITROFURANTON) [Concomitant]
  4. PREDNISOLONE (PREDNISOLONE) [Concomitant]
     Active Substance: PREDNISOLONE
  5. DICLOFENAC, ISOPROPYL MYRISTATE, PARAFFIN, LIQUID) [Concomitant]
  6. DERMOL(BENZALKONIUM CHLORIDE, CHLORHEXIDINE) [Concomitant]
  7. FUSIDIC ACID (FUSIDIC ACID) [Concomitant]
  8. DERMOL (BENZALKONIUM CHLORIDE, CHLORHEXIDINE) [Concomitant]

REACTIONS (3)
  - Stevens-Johnson syndrome [None]
  - Rash [None]
  - Dermatitis bullous [None]

NARRATIVE: CASE EVENT DATE: 20140711
